FAERS Safety Report 4584196-7 (Version None)
Quarter: 2005Q1

REPORT INFORMATION
  Report Type: 
  Country: None (occurrence: None)
  Receive Date: 20050216
  Receipt Date: 20050214
  Transmission Date: 20050727
  Serious: Yes (Death, Life-Threatening, Hospitalization, Disabling, Other)
  Sender: FDA-Public Use
  Company Number: US-GLAXOSMITHKLINE-A0545588A

PATIENT
  Age: 76 Year
  Sex: Female
  Weight: 55.6 kg

DRUGS (8)
  1. TOPOTECAN [Suspect]
     Indication: SMALL CELL LUNG CANCER STAGE UNSPECIFIED
     Dosage: 4MGM2 CYCLIC
     Route: 042
     Dates: start: 20040216, end: 20040426
  2. NEXIUM [Concomitant]
  3. BEXTRA [Concomitant]
  4. MEVACOR [Concomitant]
  5. ATIVAN [Concomitant]
  6. OXYCODONE [Concomitant]
  7. ADVAIR DISKUS 100/50 [Concomitant]
  8. DILANTIN [Concomitant]

REACTIONS (9)
  - ACUTE RESPIRATORY DISTRESS SYNDROME [None]
  - CARDIAC TAMPONADE [None]
  - DYSPNOEA EXACERBATED [None]
  - NAUSEA [None]
  - OXYGEN SATURATION DECREASED [None]
  - PNEUMONIA [None]
  - PYREXIA [None]
  - SEPSIS [None]
  - VOMITING [None]
